FAERS Safety Report 12297267 (Version 1)
Quarter: 2016Q2

REPORT INFORMATION
  Report Type: Spontaneous
  Country: US (occurrence: US)
  Receive Date: 20160422
  Receipt Date: 20160422
  Transmission Date: 20160815
  Serious: No
  Sender: FDA-Public Use
  Company Number: ADR-2015-00714

PATIENT
  Age: 55 Year
  Sex: Female

DRUGS (14)
  1. VITAMIN C [Suspect]
     Active Substance: ASCORBIC ACID
     Route: 065
  2. BACLOFEN. [Suspect]
     Active Substance: BACLOFEN
     Route: 037
  3. SERTRALINE [Suspect]
     Active Substance: SERTRALINE HYDROCHLORIDE
     Route: 065
  4. SYNTHROID [Suspect]
     Active Substance: LEVOTHYROXINE SODIUM
     Route: 065
  5. AMITIZA [Suspect]
     Active Substance: LUBIPROSTONE
     Route: 065
  6. BACLOFEN. [Suspect]
     Active Substance: BACLOFEN
     Dosage: 114.02 MCG/DAY
     Route: 037
  7. BOTOX [Suspect]
     Active Substance: ONABOTULINUMTOXINA
     Route: 065
  8. BACLOFEN. [Suspect]
     Active Substance: BACLOFEN
     Route: 037
  9. MOBIC [Suspect]
     Active Substance: MELOXICAM
     Route: 065
  10. VITAMIN D [Suspect]
     Active Substance: CHOLECALCIFEROL
     Route: 065
  11. NITROFURANTOIN. [Suspect]
     Active Substance: NITROFURANTOIN
     Route: 065
  12. DITROPAN [Suspect]
     Active Substance: OXYBUTYNIN CHLORIDE
     Route: 065
  13. CALCIUM [Suspect]
     Active Substance: CALCIUM
     Route: 065
  14. 4-AMINOPHYRIDINE [Suspect]
     Active Substance: DALFAMPRIDINE
     Route: 065

REACTIONS (3)
  - Hypotonia [Recovered/Resolved]
  - Muscle spasticity [Recovered/Resolved]
  - Pain [Recovered/Resolved]
